FAERS Safety Report 7527269 (Version 5)
Quarter: 2013Q1

REPORT INFORMATION
  Report Type: Spontaneous
  Country: DK (occurrence: DK)
  Receive Date: 20100804
  Receipt Date: 20130201
  Transmission Date: 20140127
  Serious: Yes (Death)
  Sender: FDA-Public Use
  Company Number: DK-BRISTOL-MYERS SQUIBB COMPANY-15213267

PATIENT
  Age: 36 Year
  Sex: Male
  Weight: 67 kg

DRUGS (3)
  1. ABILIFY [Suspect]
     Indication: SCHIZOPHRENIA
     Dosage: TABS
     Route: 048
     Dates: start: 20091104
  2. ZYPREXA [Suspect]
     Indication: SCHIZOPHRENIA
     Dosage: 20MG COATED TABS
     Route: 048
     Dates: start: 20060615
  3. MIRTAZAPINE [Suspect]
     Indication: DEPRESSION
     Dosage: MIRTAZAPIN KRKA,FILM COATED TABS
     Route: 048
     Dates: start: 20091104

REACTIONS (3)
  - Arrhythmia [Fatal]
  - Toxicity to various agents [Fatal]
  - Eosinophilic myocarditis [Fatal]
